FAERS Safety Report 10140548 (Version 2)
Quarter: 2014Q2

REPORT INFORMATION
  Report Type: Report from Study
  Country: CA (occurrence: CA)
  Receive Date: 20140429
  Receipt Date: 20140516
  Transmission Date: 20141212
  Serious: Yes (Death)
  Sender: FDA-Public Use
  Company Number: CA-ABBVIE-14P-028-1229981-00

PATIENT
  Sex: Female

DRUGS (1)
  1. HUMIRA [Suspect]
     Indication: PSORIASIS
     Route: 058
     Dates: start: 20140109, end: 20140211

REACTIONS (11)
  - Hepatic failure [Fatal]
  - Renal failure [Fatal]
  - Hepatic cirrhosis [Fatal]
  - Gastrointestinal haemorrhage [Fatal]
  - Hepatic encephalopathy [Fatal]
  - Gastric haemorrhage [Fatal]
  - Haematemesis [Fatal]
  - Asthenia [Fatal]
  - Otorrhoea [Fatal]
  - Mastoid effusion [Fatal]
  - Otitis media acute [Fatal]
